FAERS Safety Report 8355888-9 (Version None)
Quarter: 2012Q2

REPORT INFORMATION
  Report Type: 
  Country: None (occurrence: None)
  Receive Date: 20120510
  Receipt Date: 20120425
  Transmission Date: 20120825
  Serious: Yes (Hospitalization)
  Sender: FDA-Public Use
  Company Number: BR-20120012

PATIENT
  Age: 78 Year
  Sex: Female

DRUGS (3)
  1. ASS INFANTIL (ACETLSALICYLIC ACID) (ACETYLSALICYLIC ACID) [Concomitant]
  2. HEXABRIX [Suspect]
     Indication: CARDIAC VENTRICULOGRAM
     Dosage: 100 ML (100 ML, 1 IN 1 D)
     Dates: start: 20111019, end: 20111019
  3. HEXABRIX [Suspect]
     Indication: ARTERIOGRAM CORONARY
     Dosage: 100 ML (100 ML, 1 IN 1 D)
     Dates: start: 20111019, end: 20111019

REACTIONS (6)
  - GENERALISED OEDEMA [None]
  - THERAPEUTIC RESPONSE DELAYED [None]
  - FACE OEDEMA [None]
  - ANAPHYLACTIC REACTION [None]
  - CIRCULATORY COLLAPSE [None]
  - SHOCK [None]
